FAERS Safety Report 18871388 (Version 1)
Quarter: 2021Q1

REPORT INFORMATION
  Report Type: Spontaneous
  Country: US (occurrence: US)
  Receive Date: 20210209
  Receipt Date: 20210209
  Transmission Date: 20210420
  Serious: No
  Sender: FDA-Public Use
  Company Number: None

PATIENT
  Age: 3 Year
  Sex: Male

DRUGS (1)
  1. SINGULAIR [Suspect]
     Active Substance: MONTELUKAST SODIUM
     Indication: BRONCHIAL HYPERREACTIVITY

REACTIONS (7)
  - Scratch [None]
  - Screaming [None]
  - Nightmare [None]
  - Aggression [None]
  - Abnormal sleep-related event [None]
  - Abnormal behaviour [None]
  - Crying [None]

NARRATIVE: CASE EVENT DATE: 20120101
